FAERS Safety Report 7887830-9 (Version None)
Quarter: 2011Q4

REPORT INFORMATION
  Report Type: 
  Country: None (occurrence: None)
  Receive Date: 20111102
  Receipt Date: 20111102
  Transmission Date: 20120403
  Serious: Yes (Hospitalization)
  Sender: FDA-Public Use
  Company Number: None

PATIENT
  Age: 56 Year
  Sex: Male
  Weight: 71.4 kg

DRUGS (3)
  1. RIBAVIRIN [Concomitant]
  2. PEGASYS [Concomitant]
  3. INCIVEK [Suspect]
     Indication: HEPATITIS C
     Dosage: 750MG EVERY 8 HOURS PO
     Route: 048
     Dates: start: 20110824, end: 20111007

REACTIONS (1)
  - ABDOMINAL PAIN UPPER [None]
